FAERS Safety Report 4692430-8 (Version None)
Quarter: 2005Q2

REPORT INFORMATION
  Report Type: 
  Country: None (occurrence: None)
  Receive Date: 20050616
  Receipt Date: 20050530
  Transmission Date: 20051028
  Serious: Yes (Hospitalization)
  Sender: FDA-Public Use
  Company Number: 215187

PATIENT
  Age: 71 Year
  Sex: Male

DRUGS (4)
  1. AVASTIN [Suspect]
     Indication: COLON CANCER
     Dosage: 726 MG, Q3W, INTRAVENOUS
     Route: 042
     Dates: start: 20050504
  2. OXALIPLATIN(OXALIPLATIN) [Suspect]
     Indication: COLON CANCER
     Dosage: 278.2 MG, Q3W, INTRAVENOUS
     Route: 042
     Dates: start: 20050504
  3. FLUOROURACIL [Suspect]
     Indication: COLON CANCER
     Dosage: Q2W, NTRAVENOUS
     Route: 042
     Dates: start: 20050504
  4. LEUCOVORIN CALCIUM [Concomitant]
     Indication: COLON CANCER
     Dosage: Q2W, INTRAVENOUS
     Route: 042
     Dates: start: 20050504

REACTIONS (1)
  - VENTRICULAR TACHYCARDIA [None]
